FAERS Safety Report 11410801 (Version 1)
Quarter: 2015Q3

REPORT INFORMATION
  Report Type: Spontaneous
  Country: US (occurrence: US)
  Receive Date: 20150824
  Receipt Date: 20150824
  Transmission Date: 20151125
  Serious: Yes (Hospitalization)
  Sender: FDA-Public Use
  Company Number: US-SA-2015SA121311

PATIENT
  Age: 55 Year
  Sex: Female

DRUGS (5)
  1. OXALIPLATIN. [Suspect]
     Active Substance: OXALIPLATIN
     Indication: RECTAL ADENOCARCINOMA
     Dosage: FOR 2 CYCLES
     Route: 065
  2. FLUOROURACIL. [Suspect]
     Active Substance: FLUOROURACIL
     Indication: RECTAL ADENOCARCINOMA
     Dosage: BOLUS
  3. FLUOROURACIL. [Suspect]
     Active Substance: FLUOROURACIL
     Indication: RECTAL ADENOCARCINOMA
     Dosage: INFUSION;FOR 2 DAYS; FOR 2 CYCLES
     Route: 065
  4. LEUCOVORIN. [Suspect]
     Active Substance: LEUCOVORIN
     Indication: RECTAL ADENOCARCINOMA
     Dosage: FOR 2 CYCLES
     Route: 065
  5. CAPECITABINE. [Concomitant]
     Active Substance: CAPECITABINE
     Indication: RECTAL ADENOCARCINOMA
     Dosage: ON DAYS 1-14 OF CYCLE

REACTIONS (5)
  - Oesophageal stenosis [Unknown]
  - Odynophagia [Unknown]
  - Dysphagia [Unknown]
  - Mucosal hyperaemia [Unknown]
  - Computerised tomogram abnormal [Unknown]
